FAERS Safety Report 10498778 (Version 1)
Quarter: 2014Q4

REPORT INFORMATION
  Report Type: Spontaneous
  Country: GB (occurrence: GB)
  Receive Date: 20141006
  Receipt Date: 20141006
  Transmission Date: 20150528
  Serious: Yes (Other)
  Sender: FDA-Public Use
  Company Number: GB-WATSON-2014-21189

PATIENT
  Age: 39 Year
  Sex: Male
  Weight: 121 kg

DRUGS (1)
  1. FLUOXETINE [Suspect]
     Active Substance: FLUOXETINE\FLUOXETINE HYDROCHLORIDE
     Indication: DEPRESSION
     Dosage: 20 MG, DAILY
     Route: 048

REACTIONS (5)
  - Rash [Unknown]
  - Restless legs syndrome [Unknown]
  - Pruritus [Unknown]
  - Urticaria [Unknown]
  - Dyskinesia [Unknown]

NARRATIVE: CASE EVENT DATE: 20140911
